FAERS Safety Report 14412649 (Version 6)
Quarter: 2018Q3

REPORT INFORMATION
  Report Type: Report from Study
  Country: CA (occurrence: CA)
  Receive Date: 20180119
  Receipt Date: 20180907
  Transmission Date: 20181010
  Serious: Yes (Other)
  Sender: FDA-Public Use
  Company Number: CA-TAKEDA-2017TUS024753

PATIENT
  Age: 21 Year
  Sex: Male

DRUGS (3)
  1. VEDOLIZUMAB [Suspect]
     Active Substance: VEDOLIZUMAB
     Dosage: 300 MG, Q4WEEKS
     Route: 042
     Dates: start: 20180711, end: 20180808
  2. VEDOLIZUMAB [Suspect]
     Active Substance: VEDOLIZUMAB
     Indication: CROHN^S DISEASE
     Dosage: 300 MG, UNK
     Route: 042
     Dates: start: 20171011
  3. IRON [Concomitant]
     Active Substance: IRON
     Dosage: UNK UNK, BID
     Route: 048

REACTIONS (6)
  - Off label use [Unknown]
  - Abdominal pain [Unknown]
  - Enterostomy [Unknown]
  - Proctocolectomy [Unknown]
  - Infection [Unknown]
  - Gastrointestinal inflammation [Not Recovered/Not Resolved]

NARRATIVE: CASE EVENT DATE: 201710
